FAERS Safety Report 17259281 (Version 2)
Quarter: 2020Q1

REPORT INFORMATION
  Report Type: Spontaneous
  Country: US (occurrence: US)
  Receive Date: 20200110
  Receipt Date: 20200116
  Transmission Date: 20200409
  Serious: Yes (Other)
  Sender: FDA-Public Use
  Company Number: US-PFIZER INC-2020007309

PATIENT
  Age: 25 Year
  Sex: Female
  Weight: 80 kg

DRUGS (11)
  1. BUPIVACAINE HCL [Suspect]
     Active Substance: BUPIVACAINE HYDROCHLORIDE
     Indication: EPIDURAL ANAESTHESIA
  2. FOLIC ACID. [Suspect]
     Active Substance: FOLIC ACID
     Indication: VITAMIN SUPPLEMENTATION
     Dosage: 1 MG, UNK
     Route: 065
  3. ROPIVACAINE HYDROCHLORIDE. [Suspect]
     Active Substance: ROPIVACAINE HYDROCHLORIDE
     Indication: EPIDURAL ANAESTHESIA
     Dosage: 3 ML, UNK (INTRATHECAL DOSE OF 3 ML OF 0.1% ROPIVACAINE WITH FENTANYL 2 UG/ML)
     Route: 037
  4. ROPIVACAINE HYDROCHLORIDE. [Suspect]
     Active Substance: ROPIVACAINE HYDROCHLORIDE
     Indication: SPINAL ANAESTHESIA
     Dosage: UNK (EPIDURAL INFUSION OF 0.1% ROPIVACAINE WITH FENTANYL, BASAL RATE OF 12 ML/H)
     Route: 008
  5. BUPIVACAINE HCL [Suspect]
     Active Substance: BUPIVACAINE HYDROCHLORIDE
     Indication: SPINAL ANAESTHESIA
     Dosage: 8 ML, UNK (8 ML OF 0.25% BUPIVACAINE)
     Route: 008
  6. EPINEPHRINE/LIDOCAINE HYDROCHLORIDE [Suspect]
     Active Substance: EPINEPHRINE\LIDOCAINE HYDROCHLORIDE
     Indication: EPIDURAL TEST DOSE
     Dosage: 3 ML, UNK (3 ML OF 1.5% LIDOCAINE WITH EPINEPHRINE (1:200,000))
     Route: 008
  7. FENTANYL CITRATE. [Suspect]
     Active Substance: FENTANYL CITRATE
     Indication: EPIDURAL ANAESTHESIA
     Dosage: 2 UG/ML, UNK (3 ML OF 0.1% ROPIVACAINE WITH FENTANYL 2 UG/ML)
     Route: 037
  8. FENTANYL CITRATE. [Suspect]
     Active Substance: FENTANYL CITRATE
     Indication: SPINAL ANAESTHESIA
     Dosage: 2 UG/ML, UNK (EPIDURAL INFUSION OF 0.1% ROPIVACAINE WITH FENTANYL, BASAL RATE OF 12 ML/H)
     Route: 008
  9. FENTANYL CITRATE. [Suspect]
     Active Substance: FENTANYL CITRATE
     Dosage: 100 UG, UNK
     Route: 008
  10. LEVETIRACETAM. [Suspect]
     Active Substance: LEVETIRACETAM
     Indication: SEIZURE
     Dosage: 1500 MG, 2X/DAY
     Route: 065
  11. RINGERS LACTATE [Suspect]
     Active Substance: CALCIUM CHLORIDE\POTASSIUM CHLORIDE\SODIUM LACTATE
     Dosage: 1000 ML, UNK
     Route: 065

REACTIONS (3)
  - Heart rate increased [Recovered/Resolved]
  - Maternal exposure during pregnancy [Unknown]
  - Blood pressure fluctuation [Unknown]
